FAERS Safety Report 16017518 (Version 1)
Quarter: 2019Q1

REPORT INFORMATION
  Report Type: Spontaneous
  Country: US (occurrence: US)
  Receive Date: 20190201
  Receipt Date: 20190201
  Transmission Date: 20190418
  Serious: No
  Sender: FDA-Public Use
  Company Number: None

PATIENT
  Age: 67 Year
  Sex: Female

DRUGS (1)
  1. REPATHA [Suspect]
     Active Substance: EVOLOCUMAB
     Indication: HYPERLIPIDAEMIA
     Dosage: ?          OTHER
     Route: 058
     Dates: start: 201710

REACTIONS (4)
  - Neuralgia [None]
  - Myalgia [None]
  - Hypoaesthesia [None]
  - Muscle spasms [None]

NARRATIVE: CASE EVENT DATE: 20180104
